FAERS Safety Report 9693513 (Version 1)
Quarter: 2013Q4

REPORT INFORMATION
  Report Type: Spontaneous
  Country: NL (occurrence: NL)
  Receive Date: 20131118
  Receipt Date: 20131118
  Transmission Date: 20140711
  Serious: Yes (Other)
  Sender: FDA-Public Use
  Company Number: NL-BRISTOL-MYERS SQUIBB COMPANY-19792183

PATIENT
  Age: 58 Year
  Sex: Male
  Weight: 137 kg

DRUGS (3)
  1. BYDUREON [Suspect]
     Indication: DIABETES MELLITUS
     Dates: start: 20100528
  2. LANTUS [Concomitant]
  3. OMEPRAZOLE [Concomitant]

REACTIONS (1)
  - Renal cell carcinoma [Unknown]
